FAERS Safety Report 5017015-5 (Version None)
Quarter: 2006Q2

REPORT INFORMATION
  Report Type: 
  Country: None (occurrence: None)
  Receive Date: 20060526
  Receipt Date: 20060512
  Transmission Date: 20061013
  Serious: Yes (Other)
  Sender: FDA-Public Use
  Company Number: 25037

PATIENT
  Sex: Female

DRUGS (2)
  1. NIASPAN [Suspect]
     Dosage: 500 MG PO
     Route: 048
  2. NAPROSYN [Suspect]

REACTIONS (1)
  - INTERCEPTED DRUG DISPENSING ERROR [None]
